FAERS Safety Report 24524837 (Version 4)
Quarter: 2024Q4

REPORT INFORMATION
  Report Type: Spontaneous
  Country: US (occurrence: US)
  Receive Date: 20241019
  Receipt Date: 20241126
  Transmission Date: 20250115
  Serious: Yes (Hospitalization)
  Sender: ROCHE
  Company Number: US-ROCHE-10000105869

PATIENT
  Sex: Male

DRUGS (2)
  1. ROZLYTREK [Suspect]
     Active Substance: ENTRECTINIB
     Indication: Neuroendocrine carcinoma
     Route: 048
     Dates: start: 20240201
  2. ROZLYTREK [Suspect]
     Active Substance: ENTRECTINIB
     Indication: Neuroendocrine tumour

REACTIONS (5)
  - Septic shock [Unknown]
  - Dizziness postural [Unknown]
  - Hypotension [Unknown]
  - Off label use [Unknown]
  - Weight increased [Unknown]
